FAERS Safety Report 10387246 (Version 2)
Quarter: 2014Q3

REPORT INFORMATION
  Report Type: Spontaneous
  Country: GB (occurrence: GB)
  Receive Date: 20140815
  Receipt Date: 20140902
  Transmission Date: 20150326
  Serious: Yes (Disabling)
  Sender: FDA-Public Use
  Company Number: GB-WATSON-2014-17463

PATIENT
  Age: 57 Year
  Sex: Female
  Weight: 108 kg

DRUGS (3)
  1. TIOTROPIUM BROMIDE [Concomitant]
     Active Substance: TIOTROPIUM BROMIDE
     Indication: CHRONIC OBSTRUCTIVE PULMONARY DISEASE
     Dosage: 18 ?G, DAILY
     Route: 055
     Dates: start: 20140708
  2. DOXYCYCLINE HYCLATE. [Suspect]
     Active Substance: DOXYCYCLINE HYCLATE
     Indication: UPPER RESPIRATORY TRACT INFECTION
     Dosage: 100MG,BID; 100 MG, BID X 2 DAYS, 4 CAPSULES TOTAL
     Route: 048
     Dates: start: 20140713, end: 20140715
  3. FLUTICASONE [Concomitant]
     Active Substance: FLUTICASONE\FLUTICASONE PROPIONATE
     Indication: PRODUCT USED FOR UNKNOWN INDICATION
     Dosage: 250 ?G, BID; 125MCG CFC INHALER TWO DOSES, TWICE PER DAY
     Route: 055
     Dates: start: 20130923

REACTIONS (8)
  - Palpitations [Recovered/Resolved]
  - Dizziness [Recovered/Resolved]
  - Social avoidant behaviour [Recovered/Resolved]
  - Pruritus [Recovered/Resolved]
  - Headache [Recovering/Resolving]
  - Nausea [Recovering/Resolving]
  - Depressed mood [Recovered/Resolved]
  - Anxiety [Recovering/Resolving]

NARRATIVE: CASE EVENT DATE: 20140714
